FAERS Safety Report 16827848 (Version 1)
Quarter: 2019Q4

REPORT INFORMATION
  Report Type: Spontaneous
  Country: US (occurrence: US)
  Receive Date: 20190919
  Receipt Date: 20190919
  Transmission Date: 20200122
  Serious: Yes (Hospitalization)
  Sender: FDA-Public Use
  Company Number: None

PATIENT
  Age: 62 Year
  Sex: Female
  Weight: 85.95 kg

DRUGS (5)
  1. MODAFINIL. [Concomitant]
     Active Substance: MODAFINIL
  2. REXULTI [Suspect]
     Active Substance: BREXPIPRAZOLE
     Indication: DEPRESSION
     Route: 048
     Dates: start: 20190725, end: 20190907
  3. PREGABALIN. [Concomitant]
     Active Substance: PREGABALIN
  4. PRIMIDONE. [Concomitant]
     Active Substance: PRIMIDONE
  5. REXULTI [Suspect]
     Active Substance: BREXPIPRAZOLE
     Indication: BIPOLAR II DISORDER
     Route: 048
     Dates: start: 20190725, end: 20190907

REACTIONS (4)
  - Suicidal ideation [None]
  - Insomnia [None]
  - Fatigue [None]
  - Apathy [None]

NARRATIVE: CASE EVENT DATE: 20190906
